FAERS Safety Report 19095949 (Version 3)
Quarter: 2021Q2

REPORT INFORMATION
  Report Type: Report from Study
  Country: US (occurrence: US)
  Receive Date: 20210406
  Receipt Date: 20210630
  Transmission Date: 20210717
  Serious: Yes (Death, Life-Threatening, Hospitalization, Other)
  Sender: FDA-Public Use
  Company Number: NVSC2021US077276

PATIENT
  Age: 82 Year
  Sex: Male
  Weight: 67.5 kg

DRUGS (12)
  1. BRILINTA [Concomitant]
     Active Substance: TICAGRELOR
     Indication: PRODUCT USED FOR UNKNOWN INDICATION
     Dosage: UNK
     Route: 065
  2. FUROSEMIDE. [Concomitant]
     Active Substance: FUROSEMIDE
     Indication: PRODUCT USED FOR UNKNOWN INDICATION
     Dosage: UNK
     Route: 065
  3. CORLANOR [Concomitant]
     Active Substance: IVABRADINE HYDROCHLORIDE
     Indication: PRODUCT USED FOR UNKNOWN INDICATION
     Dosage: UNK
     Route: 065
  4. ENALAPRIL [Concomitant]
     Active Substance: ENALAPRIL
     Indication: PRODUCT USED FOR UNKNOWN INDICATION
     Dosage: UNK
     Route: 065
  5. ASPIRIN. [Concomitant]
     Active Substance: ASPIRIN
     Indication: PRODUCT USED FOR UNKNOWN INDICATION
     Dosage: UNK
     Route: 065
  6. LASIX [Concomitant]
     Active Substance: FUROSEMIDE
     Indication: PRODUCT USED FOR UNKNOWN INDICATION
     Dosage: UNK
     Route: 065
  7. ATORVASTATIN [Concomitant]
     Active Substance: ATORVASTATIN
     Indication: PRODUCT USED FOR UNKNOWN INDICATION
     Dosage: UNK
     Route: 065
  8. PROCOR [Concomitant]
     Indication: PRODUCT USED FOR UNKNOWN INDICATION
     Dosage: UNK
     Route: 065
  9. ENTRESTO [Suspect]
     Active Substance: SACUBITRIL\VALSARTAN
     Indication: CARDIAC FAILURE CHRONIC
     Dosage: 1 DF, BID
     Route: 048
     Dates: start: 20190917
  10. NITROGLYCERIN. [Concomitant]
     Active Substance: NITROGLYCERIN
     Indication: PRODUCT USED FOR UNKNOWN INDICATION
     Dosage: UNK
     Route: 065
  11. MORPHINE [Suspect]
     Active Substance: MORPHINE
     Indication: PRODUCT USED FOR UNKNOWN INDICATION
     Dosage: UNK UNK, UNKNOWN
     Route: 065
  12. CARVEDILOL. [Concomitant]
     Active Substance: CARVEDILOL
     Indication: PRODUCT USED FOR UNKNOWN INDICATION
     Dosage: UNK
     Route: 065

REACTIONS (61)
  - Cardiogenic shock [Fatal]
  - Pneumonia [Unknown]
  - Left ventricular failure [Unknown]
  - Ejection fraction decreased [Unknown]
  - Haemoptysis [Unknown]
  - Gastroenteritis [Unknown]
  - Food poisoning [Unknown]
  - Tachypnoea [Unknown]
  - Ischaemic cardiomyopathy [Unknown]
  - Renal ischaemia [Unknown]
  - Transaminases increased [Unknown]
  - Pleural effusion [Unknown]
  - Condition aggravated [Unknown]
  - Chronic kidney disease [Unknown]
  - Renal tubular necrosis [Unknown]
  - Nausea [Unknown]
  - Hypophosphataemia [Recovered/Resolved]
  - Drug intolerance [Unknown]
  - Respiratory failure [Fatal]
  - Leukocytosis [Unknown]
  - Renal failure [Unknown]
  - Restlessness [Unknown]
  - Sinus node dysfunction [Unknown]
  - Haemodilution [Unknown]
  - Chronic obstructive pulmonary disease [Unknown]
  - Arterial occlusive disease [Unknown]
  - Cardiac failure congestive [Unknown]
  - Metabolic encephalopathy [Unknown]
  - Hypertensive urgency [Recovered/Resolved]
  - Infection [Unknown]
  - Agitation [Unknown]
  - Anaemia [Unknown]
  - Tachycardia [Unknown]
  - Systemic inflammatory response syndrome [Unknown]
  - Shock [Unknown]
  - Confusional state [Unknown]
  - Respiratory distress [Unknown]
  - Blood creatinine increased [Unknown]
  - Oliguria [Unknown]
  - Pulmonary oedema [Unknown]
  - Acute kidney injury [Unknown]
  - Urinary retention [Unknown]
  - Bladder cancer [Unknown]
  - Abdominal pain upper [Unknown]
  - Hypotension [Unknown]
  - Anxiety [Unknown]
  - Lactic acidosis [Unknown]
  - Sepsis [Unknown]
  - Multiple organ dysfunction syndrome [Unknown]
  - Hyperbilirubinaemia [Unknown]
  - Atrioventricular block complete [Unknown]
  - Hypovolaemia [Unknown]
  - Peripheral vascular disorder [Unknown]
  - Essential hypertension [Unknown]
  - Gastrooesophageal reflux disease [Unknown]
  - Cardiac dysfunction [Unknown]
  - Pneumonia staphylococcal [Unknown]
  - Nasopharyngitis [Unknown]
  - Cyanosis [Unknown]
  - Mental status changes [Unknown]
  - Gilbert^s syndrome [Unknown]

NARRATIVE: CASE EVENT DATE: 20210401
